FAERS Safety Report 12740174 (Version 3)
Quarter: 2016Q4

REPORT INFORMATION
  Report Type: Spontaneous
  Country: US (occurrence: US)
  Receive Date: 20160913
  Receipt Date: 20161206
  Transmission Date: 20170207
  Serious: Yes (Disabling)
  Sender: FDA-Public Use
  Company Number: US-GLAXOSMITHKLINE-US2016GSK132910

PATIENT
  Sex: Female

DRUGS (1)
  1. LAMOTRIGINE TABLET [Suspect]
     Active Substance: LAMOTRIGINE
     Indication: BIPOLAR DISORDER
     Dosage: 400 MG, QD
     Route: 048

REACTIONS (5)
  - Confusional state [Unknown]
  - Activities of daily living impaired [Unknown]
  - Balance disorder [Unknown]
  - Product substitution issue [Unknown]
  - Drug ineffective [Recovered/Resolved]
